FAERS Safety Report 8514922-3 (Version None)
Quarter: 2012Q3

REPORT INFORMATION
  Report Type: 
  Country: None (occurrence: None)
  Receive Date: 20120717
  Receipt Date: 20120710
  Transmission Date: 20120928
  Serious: Yes (Other)
  Sender: FDA-Public Use
  Company Number: DK-ASTRAZENECA-2012SE47381

PATIENT
  Age: 82 Year
  Sex: Female

DRUGS (3)
  1. ATACAND [Suspect]
     Route: 048
     Dates: end: 20120627
  2. DIGOXIN [Concomitant]
  3. CANDESARTAN CILEXETIL [Suspect]
     Dates: start: 20120627

REACTIONS (5)
  - PAIN IN EXTREMITY [None]
  - BACK PAIN [None]
  - NAUSEA [None]
  - HYPERTENSION [None]
  - DIZZINESS [None]
